FAERS Safety Report 23915698 (Version 1)
Quarter: 2024Q2

REPORT INFORMATION
  Report Type: Spontaneous
  Country: CN (occurrence: None)
  Receive Date: 20240529
  Receipt Date: 20240529
  Transmission Date: 20240716
  Serious: Yes (Death, Other)
  Sender: FDA-Public Use
  Company Number: CN-ROCHE-3571671

PATIENT
  Age: 80 Year
  Sex: Female

DRUGS (2)
  1. TECENTRIQ [Suspect]
     Active Substance: ATEZOLIZUMAB
     Indication: Hepatocellular carcinoma
     Route: 065
     Dates: start: 20220527
  2. TECENTRIQ [Suspect]
     Active Substance: ATEZOLIZUMAB
     Route: 065
     Dates: start: 20221201

REACTIONS (7)
  - Off label use [Unknown]
  - Cardiac failure [Fatal]
  - Respiratory failure [Fatal]
  - Platelet count decreased [Unknown]
  - Asthenia [Unknown]
  - Decreased appetite [Unknown]
  - Gait inability [Unknown]

NARRATIVE: CASE EVENT DATE: 20220527
